FAERS Safety Report 7514107-3 (Version None)
Quarter: 2011Q2

REPORT INFORMATION
  Report Type: 
  Country: None (occurrence: None)
  Receive Date: 20110531
  Receipt Date: 20101026
  Transmission Date: 20111010
  Serious: No
  Sender: FDA-Public Use
  Company Number: US-BAYER-201038601NA

PATIENT
  Age: 81 Year
  Sex: Female

DRUGS (1)
  1. AVELOX [Suspect]
     Indication: PHARYNGITIS
     Dosage: 400 MG, QD
     Route: 048
     Dates: start: 20101025

REACTIONS (1)
  - HEART RATE IRREGULAR [None]
